FAERS Safety Report 7050683-5 (Version None)
Quarter: 2010Q4

REPORT INFORMATION
  Report Type: 
  Country: None (occurrence: None)
  Receive Date: 20101018
  Receipt Date: 20101005
  Transmission Date: 20110411
  Serious: Yes (Hospitalization)
  Sender: FDA-Public Use
  Company Number: DE-MYLANLABS-2010S1016774

PATIENT
  Age: 40 Year
  Sex: Female
  Weight: 56 kg

DRUGS (4)
  1. TRAMADOL HCL [Suspect]
     Indication: BACK PAIN
     Dosage: AM AUFNAHMETAG UBERDOSIERUNG MIT 6 RETARDTABLETTEN A 150MG (900MG) WEGEN STARKER SCHMERZEN
     Route: 048
     Dates: end: 20100628
  2. TRAMADOL HCL [Suspect]
     Route: 040
     Dates: start: 20100628, end: 20100628
  3. TRAMADOL HCL [Suspect]
     Route: 048
     Dates: start: 20100628, end: 20100628
  4. METAMIZOLE [Concomitant]
     Indication: BACK PAIN
     Route: 048

REACTIONS (2)
  - DRUG TOXICITY [None]
  - SOMNOLENCE [None]
